FAERS Safety Report 7754056-9 (Version None)
Quarter: 2011Q3

REPORT INFORMATION
  Report Type: 
  Country: None (occurrence: None)
  Receive Date: 20110915
  Receipt Date: 20110908
  Transmission Date: 20111222
  Serious: Yes (Hospitalization, Other)
  Sender: FDA-Public Use
  Company Number: BR-SANOFI-AVENTIS-2011SA058625

PATIENT
  Age: 66 Year
  Sex: Female
  Weight: 103 kg

DRUGS (6)
  1. LOSARTAN POTASSIUM [Concomitant]
     Indication: HYPERTENSION
     Route: 048
     Dates: start: 20101201
  2. VICTOZA [Concomitant]
     Route: 058
  3. METFORMIN HYDROCHLORIDE [Concomitant]
     Route: 048
     Dates: start: 20101201
  4. LANTUS [Suspect]
     Route: 058
     Dates: start: 20081101
  5. ROSUVASTATIN CALCIUM [Concomitant]
     Route: 048
     Dates: start: 20110101
  6. SOLOSTAR [Suspect]
     Route: 058
     Dates: start: 20081101

REACTIONS (5)
  - LUNG NEOPLASM MALIGNANT [None]
  - WEIGHT INCREASED [None]
  - ABDOMINAL DISTENSION [None]
  - OBESITY [None]
  - INJECTION SITE PAIN [None]
